FAERS Safety Report 8227826-0 (Version None)
Quarter: 2012Q1

REPORT INFORMATION
  Report Type: 
  Country: None (occurrence: None)
  Receive Date: 20120322
  Receipt Date: 20120314
  Transmission Date: 20120608
  Serious: Yes (Hospitalization)
  Sender: FDA-Public Use
  Company Number: US-BAYER-2011-112496

PATIENT
  Sex: Female
  Weight: 104 kg

DRUGS (3)
  1. YAZ [Suspect]
     Dosage: UNK
     Route: 048
     Dates: start: 20090701, end: 20091001
  2. YASMIN [Suspect]
     Dosage: UNK
     Dates: start: 20040101
  3. YASMIN [Suspect]
     Dosage: UNK
     Dates: start: 20090801, end: 20091001

REACTIONS (8)
  - PULMONARY EMBOLISM [None]
  - ANXIETY [None]
  - GENERAL PHYSICAL HEALTH DETERIORATION [None]
  - EMOTIONAL DISTRESS [None]
  - DEEP VEIN THROMBOSIS [None]
  - ANHEDONIA [None]
  - INJURY [None]
  - PAIN [None]
